FAERS Safety Report 25120156 (Version 1)
Quarter: 2025Q1

REPORT INFORMATION
  Report Type: Spontaneous
  Country: US (occurrence: US)
  Receive Date: 20250325
  Receipt Date: 20250325
  Transmission Date: 20250409
  Serious: Yes (Hospitalization, Other)
  Sender: PFIZER
  Company Number: US-PFIZER INC-PV202500034215

PATIENT
  Age: 64 Year
  Sex: Male

DRUGS (14)
  1. XELJANZ XR [Suspect]
     Active Substance: TOFACITINIB CITRATE
  2. ORGOVYX [Suspect]
     Active Substance: RELUGOLIX
     Indication: Prostate cancer
     Route: 048
     Dates: start: 20240415, end: 20240415
  3. ORGOVYX [Suspect]
     Active Substance: RELUGOLIX
     Dosage: 120 MG, DAILY
     Route: 048
     Dates: start: 20240416
  4. ORGOVYX [Suspect]
     Active Substance: RELUGOLIX
     Dates: start: 202404
  5. ORGOVYX [Suspect]
     Active Substance: RELUGOLIX
     Dosage: ROUTE USED:120MG , QD, ORAL
     Route: 048
     Dates: start: 20240416
  6. ORGOVYX [Suspect]
     Active Substance: RELUGOLIX
  7. ORGOVYX [Suspect]
     Active Substance: RELUGOLIX
  8. ORGOVYX [Suspect]
     Active Substance: RELUGOLIX
  9. ORGOVYX [Suspect]
     Active Substance: RELUGOLIX
     Dosage: 120MG , QD, ORAL
     Route: 048
     Dates: start: 20240416
  10. ORGOVYX [Suspect]
     Active Substance: RELUGOLIX
     Dosage: 120MG , QD, ORAL
     Route: 048
     Dates: start: 20240416
  11. ORGOVYX [Suspect]
     Active Substance: RELUGOLIX
     Route: 048
  12. ORGOVYX [Suspect]
     Active Substance: RELUGOLIX
     Dosage: 120MG , QD, ORAL
     Route: 048
     Dates: start: 20240416
  13. ORGOVYX [Suspect]
     Active Substance: RELUGOLIX
  14. NUBEQA [Suspect]
     Active Substance: DAROLUTAMIDE

REACTIONS (10)
  - Prostate cancer [Unknown]
  - Bradyphrenia [Unknown]
  - Hot flush [Not Recovered/Not Resolved]
  - Back pain [Unknown]
  - Laziness [Unknown]
  - Influenza like illness [Recovered/Resolved]
  - Blood testosterone decreased [Unknown]
  - Blood cholesterol increased [Unknown]
  - Fatigue [Not Recovered/Not Resolved]
  - Product dose omission issue [Recovered/Resolved]

NARRATIVE: CASE EVENT DATE: 20240401
